FAERS Safety Report 11698000 (Version 1)
Quarter: 2015Q4

REPORT INFORMATION
  Report Type: Spontaneous
  Country: CA (occurrence: CA)
  Receive Date: 20151104
  Receipt Date: 20151104
  Transmission Date: 20160304
  Serious: Yes (Other)
  Sender: FDA-Public Use
  Company Number: CA-TEVA-605436ACC

PATIENT
  Age: 53 Year
  Sex: Female
  Weight: 98.97 kg

DRUGS (2)
  1. CIPROFLOXACIN INJECTION USP [Suspect]
     Active Substance: CIPROFLOXACIN
     Indication: DIARRHOEA
  2. CIPROFLOXACIN INJECTION USP [Suspect]
     Active Substance: CIPROFLOXACIN
     Indication: NAUSEA
     Dosage: 800 MILLIGRAM DAILY;
     Route: 042

REACTIONS (2)
  - Pruritus [Recovered/Resolved]
  - Infusion site erythema [Recovered/Resolved]
